FAERS Safety Report 5100156-1 (Version None)
Quarter: 2006Q3

REPORT INFORMATION
  Report Type: 
  Country: None (occurrence: None)
  Receive Date: 20060908
  Receipt Date: 20060829
  Transmission Date: 20061208
  Serious: Yes (Other)
  Sender: FDA-Public Use
  Company Number: DE-ABBOTT-06P-062-0343091-00

PATIENT
  Age: 46 Year
  Sex: Female

DRUGS (1)
  1. CYCLOSPORINE [Suspect]
     Indication: BEHCET'S SYNDROME
     Dosage: NOT REPORTED

REACTIONS (3)
  - DYSARTHRIA [None]
  - FACIAL PALSY [None]
  - HEMIPARESIS [None]
